FAERS Safety Report 15158206 (Version 1)
Quarter: 2018Q3

REPORT INFORMATION
  Report Type: Spontaneous
  Country: US (occurrence: US)
  Receive Date: 20180718
  Receipt Date: 20180718
  Transmission Date: 20181010
  Serious: Yes (Death)
  Sender: FDA-Public Use
  Company Number: US-BAYER-2018-133073

PATIENT
  Age: 85 Year
  Sex: Male

DRUGS (2)
  1. ACETYLSALICYLIC ACID({=100 MG) [Suspect]
     Active Substance: ASPIRIN
  2. CLOPIDOGREL [Interacting]
     Active Substance: CLOPIDOGREL BISULFATE

REACTIONS (8)
  - Contraindicated product administered [Fatal]
  - Labelled drug-drug interaction medication error [Fatal]
  - Subcutaneous haematoma [Fatal]
  - Soft tissue haemorrhage [Fatal]
  - Dyspnoea [None]
  - Mediastinal haematoma [Fatal]
  - Contusion [Fatal]
  - Haematoma [Fatal]
